FAERS Safety Report 7039182-4 (Version None)
Quarter: 2010Q4

REPORT INFORMATION
  Report Type: 
  Country: None (occurrence: None)
  Receive Date: 20101012
  Receipt Date: 20101008
  Transmission Date: 20110411
  Serious: Yes (Hospitalization)
  Sender: FDA-Public Use
  Company Number: IT-SANOFI-AVENTIS-2010SA061053

PATIENT
  Sex: Male

DRUGS (5)
  1. TAXOTERE [Suspect]
     Indication: HEAD AND NECK CANCER
     Route: 041
     Dates: start: 20100920, end: 20100920
  2. CISPLATIN [Suspect]
     Indication: HEAD AND NECK CANCER
     Route: 041
     Dates: start: 20100920, end: 20100920
  3. FLUOROURACIL [Suspect]
     Indication: HEAD AND NECK CANCER
     Route: 041
     Dates: start: 20100924, end: 20100924
  4. LISINOPRIL AND HYDROCHLOROTHIAZIDE [Concomitant]
     Indication: PRODUCT USED FOR UNKNOWN INDICATION
     Dates: end: 20100923
  5. CIPROFLOXACINA [Concomitant]
     Indication: PRODUCT USED FOR UNKNOWN INDICATION
     Dates: end: 20100928

REACTIONS (4)
  - FEBRILE NEUTROPENIA [None]
  - HYPONATRAEMIA [None]
  - HYPOTENSION [None]
  - STOMATITIS [None]
